FAERS Safety Report 10597418 (Version 3)
Quarter: 2014Q4

REPORT INFORMATION
  Report Type: Report from Study
  Country: DK (occurrence: DK)
  Receive Date: 20141121
  Receipt Date: 20141201
  Transmission Date: 20150529
  Serious: Yes (Hospitalization, Other)
  Sender: FDA-Public Use
  Company Number: PHHY2013DK127681

PATIENT
  Age: 41 Year
  Sex: Female
  Weight: 105.7 kg

DRUGS (6)
  1. SANDOSTATIN LAR DEPOT [Concomitant]
     Active Substance: OCTREOTIDE ACETATE
     Dosage: 30 MG, PER 4 WEEKS
     Route: 065
     Dates: start: 20130528, end: 20140214
  2. PEGINTRON [Concomitant]
     Active Substance: PEGINTERFERON ALFA-2B
     Indication: NEUROENDOCRINE TUMOUR
     Dosage: 64 UG
     Route: 065
  3. SANDOSTATIN LAR DEPOT [Concomitant]
     Active Substance: OCTREOTIDE ACETATE
     Indication: NEUROENDOCRINE TUMOUR
     Dosage: 30 MG, PER 4 WEEKS
     Route: 065
     Dates: start: 20070508, end: 20071025
  4. SOM230 [Suspect]
     Active Substance: PASIREOTIDE
     Dosage: 60 MG/04 WEEKS
     Route: 058
     Dates: start: 201305, end: 201409
  5. SOM230 [Suspect]
     Active Substance: PASIREOTIDE
     Indication: NEUROENDOCRINE TUMOUR
     Dosage: 60 MG/ 04 WEEKS
     Route: 058
     Dates: start: 20100812, end: 201301
  6. IPSTYL [Concomitant]
     Active Substance: LANREOTIDE ACETATE
     Indication: NEUROENDOCRINE TUMOUR
     Dosage: 120 MG
     Route: 065

REACTIONS (8)
  - Diabetes mellitus [Not Recovered/Not Resolved]
  - Malignant neoplasm progression [Not Recovered/Not Resolved]
  - Cholecystitis chronic [Recovered/Resolved]
  - Hypothyroidism [Not Recovered/Not Resolved]
  - Polydipsia [Unknown]
  - Weight decreased [Unknown]
  - Bone pain [Recovering/Resolving]
  - Fatigue [Unknown]

NARRATIVE: CASE EVENT DATE: 20121011
